FAERS Safety Report 5913755-1 (Version None)
Quarter: 2008Q4

REPORT INFORMATION
  Report Type: 
  Country: None (occurrence: None)
  Receive Date: 20081009
  Receipt Date: 20081001
  Transmission Date: 20090506
  Serious: Yes (Other)
  Sender: FDA-Public Use
  Company Number: SE-NOVOPROD-278063

PATIENT
  Age: 60 Year
  Sex: Male
  Weight: 87 kg

DRUGS (15)
  1. INSULATARD [Suspect]
     Indication: TYPE 2 DIABETES MELLITUS
     Dosage: 10-15 IU QD AT ABOUT 21 OA'CLOCK
     Route: 058
     Dates: start: 19971101
  2. INSULATARD [Suspect]
     Dosage: 30-35 IU AT ABOUT 21 OA'CLOCK
     Route: 058
     Dates: start: 19980101
  3. INSULATARD [Suspect]
     Dosage: 15-20 IU QD AT ABOUT 21 OA'CLOCK
     Route: 058
     Dates: start: 19990101
  4. INSULATARD [Suspect]
     Dosage: 25-30 IU QD AT ABOUT 21 OA'CLOCK
     Route: 058
     Dates: start: 20000101
  5. INSULATARD [Suspect]
     Dosage: 30-35 IU QD AT ABOUT 21 OA'CLOCK
     Route: 058
     Dates: start: 20010101
  6. INSULATARD [Suspect]
     Dosage: 40-45 IU QD AT ABOUT 21 OA'CLOCK
     Route: 058
     Dates: start: 20020101
  7. INSULATARD [Suspect]
     Dosage: 45-50 IU QD AT ABOUT 21 OA'CLOCK
     Route: 058
     Dates: start: 20030101, end: 20040101
  8. GLIMEPIRIDE [Concomitant]
  9. QUINAPRIL [Concomitant]
     Dates: end: 20000101
  10. METOPROLOL TARTRATE [Concomitant]
  11. FUROSEMIDE [Concomitant]
  12. SIMVASTATIN [Concomitant]
  13. ASPIRIN [Concomitant]
  14. CANDESARTAN [Concomitant]
     Dates: start: 20000101
  15. AMLOPIN                            /00972402/ [Concomitant]
     Dates: start: 20000101

REACTIONS (2)
  - RENAL IMPAIRMENT [None]
  - WEIGHT INCREASED [None]
